FAERS Safety Report 23655208 (Version 1)
Quarter: 2024Q1

REPORT INFORMATION
  Report Type: Spontaneous
  Country: CA (occurrence: CA)
  Receive Date: 20240320
  Receipt Date: 20240320
  Transmission Date: 20240409
  Serious: Yes (Life-Threatening, Hospitalization, Other)
  Sender: FDA-Public Use
  Company Number: CA-GILEAD-2024-0666234

PATIENT
  Age: 77 Year
  Sex: Female
  Weight: 67 kg

DRUGS (14)
  1. VEKLURY [Suspect]
     Active Substance: REMDESIVIR
     Indication: COVID-19
     Dosage: 400 MG, QD (POWDER FOR SOLUTION INTRAVENOUS)
     Route: 042
  2. AMIODARONE [Concomitant]
     Active Substance: AMIODARONE
  3. ATORVASTATIN CALCIUM [Concomitant]
     Active Substance: ATORVASTATIN CALCIUM
  4. CLOPIDOGREL [Concomitant]
     Active Substance: CLOPIDOGREL BISULFATE
  5. ELIQUIS [Concomitant]
     Active Substance: APIXABAN
  6. INSULIN GLARGINE [Concomitant]
     Active Substance: INSULIN GLARGINE
  7. LEVOTHYROXINE SODIUM [Concomitant]
     Active Substance: LEVOTHYROXINE SODIUM
  8. METOPROLOL [Concomitant]
     Active Substance: METOPROLOL
  9. NIFEDIPINE [Concomitant]
     Active Substance: NIFEDIPINE
  10. NITROGLYCERIN [Concomitant]
     Active Substance: NITROGLYCERIN
  11. NOVORAPID [Concomitant]
     Active Substance: INSULIN ASPART
  12. TRELEGY ELLIPTA [Concomitant]
     Active Substance: FLUTICASONE FUROATE\UMECLIDINIUM BROMIDE\VILANTEROL TRIFENATATE
  13. VENLAFAXINE HYDROCHLORIDE [Concomitant]
     Active Substance: VENLAFAXINE HYDROCHLORIDE
  14. CYANOCOBALAMIN [Concomitant]
     Active Substance: CYANOCOBALAMIN

REACTIONS (4)
  - Acute kidney injury [Recovered/Resolved]
  - Bradycardia [Recovered/Resolved]
  - Cardiac pacemaker insertion [Recovered/Resolved]
  - Dialysis [Recovered/Resolved]
